FAERS Safety Report 6678865-2 (Version None)
Quarter: 2010Q2

REPORT INFORMATION
  Report Type: 
  Country: None (occurrence: None)
  Receive Date: 20100413
  Receipt Date: 20100405
  Transmission Date: 20101027
  Serious: No
  Sender: FDA-Public Use
  Company Number: BR-ABBOTT-09P-020-0617115-00

PATIENT
  Sex: Male
  Weight: 50 kg

DRUGS (3)
  1. HUMIRA [Suspect]
     Indication: ANKYLOSING SPONDYLITIS
     Route: 058
     Dates: start: 20091017
  2. METHYLPREDNISOLONE / PHENYLBUTAZONE / FAMOTIDINE [Concomitant]
     Indication: ANKYLOSING SPONDYLITIS
     Dosage: 3MG/170MG/20MG ONCE IN 24 HOURS
     Route: 048
     Dates: start: 20091017
  3. MAGISTRAL FORMULA WITH 10 UNKNOWN COMPOUNDS [Concomitant]
     Indication: ANKYLOSING SPONDYLITIS
     Dates: start: 19900101

REACTIONS (1)
  - WEIGHT INCREASED [None]
